FAERS Safety Report 24974324 (Version 2)
Quarter: 2025Q2

REPORT INFORMATION
  Report Type: Report from Study
  Country: US (occurrence: US)
  Receive Date: 20250217
  Receipt Date: 20250519
  Transmission Date: 20250717
  Serious: No
  Sender: TAKEDA
  Company Number: US-TAKEDA-2022TUS014840

PATIENT
  Age: 35 Year
  Sex: Female
  Weight: 61 kg

DRUGS (21)
  1. ECALLANTIDE [Suspect]
     Active Substance: ECALLANTIDE
     Indication: Immune system disorder
  2. ECALLANTIDE [Suspect]
     Active Substance: ECALLANTIDE
     Dosage: 30 MILLIGRAM, Q2WEEKS
  3. ECALLANTIDE [Suspect]
     Active Substance: ECALLANTIDE
  4. TAKHZYRO [Suspect]
     Active Substance: LANADELUMAB-FLYO
     Indication: Hereditary angioedema
     Dosage: 300 MILLIGRAM, Q2WEEKS
     Dates: start: 20220827
  5. TAKHZYRO [Suspect]
     Active Substance: LANADELUMAB-FLYO
     Indication: Immune system disorder
  6. TAKHZYRO [Suspect]
     Active Substance: LANADELUMAB-FLYO
  7. FIRAZYR [Concomitant]
     Active Substance: ICATIBANT ACETATE
  8. VITAMIN E [Concomitant]
     Active Substance: .ALPHA.-TOCOPHEROL
  9. LORATADINE [Concomitant]
     Active Substance: LORATADINE
  10. SPIRONOLACTONE [Concomitant]
     Active Substance: SPIRONOLACTONE
  11. NORETHINDRONE [Concomitant]
     Active Substance: NORETHINDRONE
  12. FLUTICASONE PROPIONATE [Concomitant]
     Active Substance: FLUTICASONE PROPIONATE
  13. OMEPRAZOLE [Concomitant]
     Active Substance: OMEPRAZOLE
  14. ALPRAZOLAM [Concomitant]
     Active Substance: ALPRAZOLAM
  15. FEXOFENADINE HYDROCHLORIDE [Concomitant]
     Active Substance: FEXOFENADINE HYDROCHLORIDE
  16. DIPHENHYDRAMINE [Concomitant]
     Active Substance: DIPHENHYDRAMINE
  17. EPINEPHRINE [Concomitant]
     Active Substance: EPINEPHRINE
  18. SODIUM CHLORIDE [Concomitant]
     Active Substance: SODIUM CHLORIDE
  19. SODIUM CHLORIDE [Concomitant]
     Active Substance: SODIUM CHLORIDE
  20. DIPHENHYDRAMINE HYDROCHLORIDE [Concomitant]
     Active Substance: DIPHENHYDRAMINE HYDROCHLORIDE
  21. ICATIBANT [Concomitant]
     Active Substance: ICATIBANT ACETATE

REACTIONS (10)
  - COVID-19 [Unknown]
  - Road traffic accident [Unknown]
  - Seasonal allergy [Unknown]
  - Multiple allergies [Unknown]
  - Product administration error [Unknown]
  - Product dose omission issue [Unknown]
  - Influenza [Unknown]
  - Product use issue [Unknown]
  - Insurance issue [Unknown]
  - Hereditary angioedema [Unknown]

NARRATIVE: CASE EVENT DATE: 20220502
